FAERS Safety Report 9843877 (Version 1)
Quarter: 2013Q4

REPORT INFORMATION
  Report Type: Spontaneous
  Country: US (occurrence: None)
  Receive Date: 20131223
  Receipt Date: 20131223
  Transmission Date: 20140711
  Serious: No
  Sender: FDA-Public Use
  Company Number: 1000048437

PATIENT
  Age: 68 Year
  Sex: Female

DRUGS (4)
  1. LINZESS (LINACLOTIDE) (290 MICROGRAM, CAPSULES) [Suspect]
     Indication: CONSTIPATION
     Route: 048
     Dates: start: 201308, end: 20130904
  2. LORAZEPAM (LORAZEPAM) (0.5 MILLIGRAM, TABLETS) (LORAZEPAM) [Concomitant]
  3. ASPIRIN (ACETYLSALICYLIC ACID) (ACETYLSALICYLIC ACID) [Concomitant]
  4. VIT D (ERGOCALCIFEROL) (ERGOCALCIFEROL) [Concomitant]

REACTIONS (2)
  - Abdominal pain upper [None]
  - Contusion [None]
